FAERS Safety Report 9865440 (Version 1)
Quarter: 2014Q1

REPORT INFORMATION
  Report Type: Spontaneous
  Country: US (occurrence: US)
  Receive Date: 20140203
  Receipt Date: 20140203
  Transmission Date: 20141002
  Serious: No
  Sender: FDA-Public Use
  Company Number: US-ALLERGAN-1308252US

PATIENT
  Age: 58 Year
  Sex: Female

DRUGS (6)
  1. RESTASIS [Suspect]
     Indication: DRY EYE
     Dosage: 2 GTT, UNK
     Route: 047
  2. PROTONIX                           /01263201/ [Concomitant]
     Indication: GASTROOESOPHAGEAL REFLUX DISEASE
     Dosage: UNK
  3. TRILEPTAL [Concomitant]
     Indication: CONVULSION
     Dosage: 1200 MG, QHS
     Route: 048
  4. KLONOPIN [Concomitant]
     Indication: SLEEP DISORDER
     Dosage: 4 MG, QHS
     Route: 048
  5. VITAMIN D                          /00107901/ [Concomitant]
     Indication: VITAMIN D DEFICIENCY
  6. ADVAIR [Concomitant]
     Indication: HYPERSENSITIVITY
     Dosage: UNK, PRN

REACTIONS (2)
  - Accidental exposure to product [Unknown]
  - Headache [Recovered/Resolved]
